FAERS Safety Report 5582569-7 (Version None)
Quarter: 2007Q4

REPORT INFORMATION
  Report Type: 
  Country: None (occurrence: None)
  Receive Date: 20071130
  Receipt Date: 20070412
  Transmission Date: 20080405
  Serious: Yes (Other)
  Sender: FDA-Public Use
  Company Number: WAES 0704USA02527

PATIENT
  Sex: Male

DRUGS (1)
  1. FOSAMAX [Suspect]
     Dates: start: 20060101

REACTIONS (2)
  - ARTHRALGIA [None]
  - OSTEONECROSIS [None]
